FAERS Safety Report 11251563 (Version 3)
Quarter: 2015Q3

REPORT INFORMATION
  Report Type: Spontaneous
  Country: US (occurrence: US)
  Receive Date: 20150708
  Receipt Date: 20150903
  Transmission Date: 20151125
  Serious: No
  Sender: FDA-Public Use
  Company Number: US-ELI_LILLY_AND_COMPANY-US201204008535

PATIENT
  Sex: Female

DRUGS (3)
  1. CYMBALTA [Suspect]
     Active Substance: DULOXETINE HYDROCHLORIDE
     Dosage: 30 MG, BID
  2. PROZAC [Suspect]
     Active Substance: FLUOXETINE HYDROCHLORIDE
     Indication: ELECTROLYTE IMBALANCE
  3. CYMBALTA [Suspect]
     Active Substance: DULOXETINE HYDROCHLORIDE
     Indication: ELECTROLYTE IMBALANCE
     Dosage: 60 MG, UNK

REACTIONS (6)
  - Off label use [Not Recovered/Not Resolved]
  - Depressed mood [Unknown]
  - Drug effect increased [Recovered/Resolved]
  - Eye disorder [Unknown]
  - Head discomfort [Unknown]
  - Off label use [Recovered/Resolved]
